FAERS Safety Report 6325950-0 (Version None)
Quarter: 2009Q3

REPORT INFORMATION
  Report Type: 
  Country: None (occurrence: None)
  Receive Date: 20090818
  Receipt Date: 20090427
  Transmission Date: 20100115
  Serious: Yes (Other)
  Sender: FDA-Public Use
  Company Number: WAES 0904USA04168

PATIENT
  Age: 41 Year
  Sex: Female
  Weight: 69.4003 kg

DRUGS (1)
  1. JANUVIA [Suspect]
     Dosage: PO
     Route: 048
     Dates: start: 20090402

REACTIONS (2)
  - PRURITUS [None]
  - URTICARIA [None]
